FAERS Safety Report 10628039 (Version 2)
Quarter: 2014Q4

REPORT INFORMATION
  Report Type: Spontaneous
  Country: US (occurrence: US)
  Receive Date: 20141205
  Receipt Date: 20141205
  Transmission Date: 20150529
  Serious: No
  Sender: FDA-Public Use
  Company Number: US-BRISTOL-MYERS SQUIBB COMPANY-20660395

PATIENT
  Age: 49 Year
  Sex: Male

DRUGS (2)
  1. BENADRYL [Concomitant]
     Active Substance: DIPHENHYDRAMINE HYDROCHLORIDE
     Route: 042
  2. ERBITUX [Suspect]
     Active Substance: CETUXIMAB
     Indication: LUNG NEOPLASM MALIGNANT
     Dosage: PRESCRIBED LOADING DOSE : 800 MG FOR 2HRS?LOT NO: MD227-EXP:SEP2014?LOTNO:MD236-EXP:NOV2014
     Route: 042
     Dates: start: 20140418

REACTIONS (1)
  - Hypersensitivity [Recovered/Resolved]

NARRATIVE: CASE EVENT DATE: 20140418
